FAERS Safety Report 5704087-5 (Version None)
Quarter: 2008Q2

REPORT INFORMATION
  Report Type: 
  Country: None (occurrence: None)
  Receive Date: 20080414
  Receipt Date: 20080401
  Transmission Date: 20081010
  Serious: Yes (Other)
  Sender: FDA-Public Use
  Company Number: CA-SOLVAY-00308001146

PATIENT
  Sex: Male

DRUGS (1)
  1. CREON [Suspect]
     Indication: DRUG USE FOR UNKNOWN INDICATION
     Dosage: DAILY DOSE: 3 DOSAGE FORM
     Route: 065

REACTIONS (2)
  - MOUTH ULCERATION [None]
  - WRONG TECHNIQUE IN DRUG USAGE PROCESS [None]
